FAERS Safety Report 7721306-4 (Version None)
Quarter: 2011Q3

REPORT INFORMATION
  Report Type: 
  Country: None (occurrence: None)
  Receive Date: 20110830
  Receipt Date: 20110830
  Transmission Date: 20111222
  Serious: Yes (Other)
  Sender: FDA-Public Use
  Company Number: None

PATIENT
  Age: 63 Year
  Sex: Female
  Weight: 70.5 kg

DRUGS (2)
  1. ACETAMINOPHEN AND CODEINE PHOSPHATE [Suspect]
     Indication: ANALGESIC THERAPY
     Dosage: 1 OR 2 TABLETS (I TOOK 1 AT A TIME) EVERY 4 HRS. ORAL
     Route: 048
     Dates: start: 20110804, end: 20110805
  2. ACETAMINOPHEN AND CODEINE PHOSPHATE [Suspect]
     Indication: TOOTH EXTRACTION
     Dosage: 1 OR 2 TABLETS (I TOOK 1 AT A TIME) EVERY 4 HRS. ORAL
     Route: 048
     Dates: start: 20110804, end: 20110805

REACTIONS (7)
  - HEAD INJURY [None]
  - VOMITING [None]
  - DECREASED APPETITE [None]
  - SLEEP DISORDER [None]
  - CHOKING [None]
  - SOMNOLENCE [None]
  - DEPRESSED LEVEL OF CONSCIOUSNESS [None]
